FAERS Safety Report 4575498-9 (Version None)
Quarter: 2005Q1

REPORT INFORMATION
  Report Type: 
  Country: None (occurrence: None)
  Receive Date: 20050209
  Receipt Date: 20050121
  Transmission Date: 20050727
  Serious: Yes (Hospitalization)
  Sender: FDA-Public Use
  Company Number: NL-SOLVAY-00305000183

PATIENT
  Age: 487 Month
  Sex: Male
  Weight: 70 kg

DRUGS (3)
  1. FEVARIN [Suspect]
     Indication: ANXIETY
     Dosage: DAILY DOSE: 150 MILLIGRAM(S)
     Route: 065
     Dates: start: 20041215, end: 20050111
  2. FOOD ADDITIVE [Concomitant]
     Indication: ILL-DEFINED DISORDER
     Dosage: DAILY DOSE: 3 DOSAGE FORM
     Route: 065
  3. ZOPICLON [Concomitant]
     Indication: SLEEP DISORDER
     Dosage: DAILY DOSE: 7.5 MILLIGRAM(S)
     Route: 048
     Dates: start: 20030101

REACTIONS (8)
  - BACTERIAL INFECTION [None]
  - CHILLS [None]
  - DERMATITIS EXFOLIATIVE [None]
  - DIFFICULTY IN WALKING [None]
  - PAIN [None]
  - PSORIASIS [None]
  - STRESS [None]
  - SUPERINFECTION [None]
